FAERS Safety Report 6766490-4 (Version None)
Quarter: 2010Q2

REPORT INFORMATION
  Report Type: 
  Country: None (occurrence: None)
  Receive Date: 20100611
  Receipt Date: 20100525
  Transmission Date: 20101027
  Serious: Yes (Hospitalization, Disabling, Other)
  Sender: FDA-Public Use
  Company Number: US-BAYER-201010922NA

PATIENT
  Age: 38 Year
  Sex: Female
  Weight: 58 kg

DRUGS (26)
  1. MAGNEVIST [Suspect]
     Indication: NUCLEAR MAGNETIC RESONANCE IMAGING ABDOMINAL
     Dosage: AS USED: 40 ML
     Dates: start: 20050901, end: 20050901
  2. OMNISCAN [Suspect]
     Indication: ANGIOGRAM
     Dates: start: 20040831, end: 20040831
  3. OMNISCAN [Suspect]
     Dates: start: 20040511, end: 20040511
  4. OPTIMARK [Suspect]
     Indication: ANGIOGRAM
  5. MULTIHANCE [Suspect]
     Indication: ANGIOGRAM
  6. PROHANCE [Suspect]
     Indication: ANGIOGRAM
  7. UNSPECIFIED GADOLINIUM-BASED CONTRAST AGENT [Suspect]
     Indication: ANGIOGRAM
     Dates: start: 20090304, end: 20090304
  8. UNSPECIFIED GADOLINIUM-BASED CONTRAST AGENT [Suspect]
     Dates: start: 20040801, end: 20040801
  9. UNSPECIFIED GADOLINIUM-BASED CONTRAST AGENT [Suspect]
     Dates: start: 20040501, end: 20040501
  10. PAIN MEDICATIONS [Concomitant]
     Indication: PAIN
  11. PREDNISONE [Concomitant]
  12. ALENDRONATE SODIUM [Concomitant]
  13. LABETALOL HCL [Concomitant]
  14. CELLCEPT [Concomitant]
  15. PROGRAFF [Concomitant]
  16. MAGNESIUM [Concomitant]
  17. CALCIUM CARBONATE [Concomitant]
  18. EPOGEN [Concomitant]
  19. IRON [Concomitant]
  20. COUMADIN [Concomitant]
     Route: 048
     Dates: start: 20040515
  21. REQUIP [Concomitant]
     Route: 048
  22. TOPAMAX [Concomitant]
     Route: 048
  23. PREDNISONE [Concomitant]
     Route: 048
  24. VITAMIN C [Concomitant]
     Route: 048
  25. HEPARIN [Concomitant]
     Dosage: 25000U/500 ML D5W
     Route: 042
     Dates: start: 20040514
  26. PROCRIT [Concomitant]
     Route: 042
     Dates: start: 20040514

REACTIONS (18)
  - DEFORMITY [None]
  - EXTREMITY CONTRACTURE [None]
  - HYPERKERATOSIS [None]
  - JOINT CONTRACTURE [None]
  - JOINT RANGE OF MOTION DECREASED [None]
  - JOINT STIFFNESS [None]
  - MOTOR DYSFUNCTION [None]
  - MUSCULAR WEAKNESS [None]
  - MUSCULOSKELETAL STIFFNESS [None]
  - NEPHROGENIC SYSTEMIC FIBROSIS [None]
  - OEDEMA [None]
  - OEDEMA PERIPHERAL [None]
  - PAIN [None]
  - RASH [None]
  - SKIN DISCOLOURATION [None]
  - SKIN EXFOLIATION [None]
  - SKIN HYPERTROPHY [None]
  - SKIN INDURATION [None]
